FAERS Safety Report 6652331-2 (Version None)
Quarter: 2010Q1

REPORT INFORMATION
  Report Type: 
  Country: None (occurrence: None)
  Receive Date: 20100325
  Receipt Date: 20100226
  Transmission Date: 20100710
  Serious: Yes (Death, Other)
  Sender: FDA-Public Use
  Company Number: PHHY2010JP09520

PATIENT
  Age: 56 Year
  Sex: Male

DRUGS (18)
  1. CYCLOSPORINE [Suspect]
     Indication: CORD BLOOD TRANSPLANT THERAPY
     Dosage: 3 MG/KG DAILY
  2. CYCLOPHOSPHAMIDE [Concomitant]
     Indication: CORD BLOOD TRANSPLANT THERAPY
     Dosage: 120 MG/KG, UNK
  3. METHOTREXATE [Concomitant]
  4. EPIRUBICIN [Concomitant]
  5. CISPLATIN [Concomitant]
  6. CYTARABINE [Concomitant]
     Dosage: UNK
     Dates: start: 20090321
  7. CYTARABINE [Concomitant]
     Dosage: UNK
     Dates: start: 20090424
  8. DAUNORUBICIN HCL [Concomitant]
     Dosage: UNK
     Dates: start: 20090321
  9. DAUNORUBICIN HCL [Concomitant]
     Dosage: UNK
     Dates: start: 20090424
  10. VINCRISTINE [Concomitant]
  11. PREDNISOLONE [Concomitant]
  12. CYTARABINE OCFOSFATE [Concomitant]
  13. UBENIMEX [Concomitant]
  14. MITOXANTRONE [Concomitant]
  15. NITROSOUREAS [Concomitant]
  16. BUSULFEX [Concomitant]
     Dosage: 0.8 MG/KG X 8
  17. FLUDARABINE PHOSPHATE [Concomitant]
     Dosage: 30 MG/M2 X 6
  18. ANTILYMPHOCYTE GLOBULIN [Concomitant]
     Dosage: 2.5 MG/KG X 4

REACTIONS (8)
  - DECREASED APPETITE [None]
  - ENTERITIS [None]
  - INTESTINAL ISCHAEMIA [None]
  - MYELOMA RECURRENCE [None]
  - MYELOPROLIFERATIVE DISORDER [None]
  - PNEUMONIA [None]
  - SYSTEMIC MYCOSIS [None]
  - TRANSPLANT REJECTION [None]
